FAERS Safety Report 17092864 (Version 3)
Quarter: 2020Q1

REPORT INFORMATION
  Report Type: Spontaneous
  Country: US (occurrence: US)
  Receive Date: 20191129
  Receipt Date: 20200118
  Transmission Date: 20200409
  Serious: Yes (Hospitalization, Other)
  Sender: FDA-Public Use
  Company Number: US-AMGEN INC.-USASP2019198754

PATIENT
  Age: 75 Year
  Sex: Male
  Weight: 67 kg

DRUGS (1)
  1. AIMOVIG [Suspect]
     Active Substance: ERENUMAB-AOOE
     Indication: MIGRAINE
     Dosage: 140 MILLIGRAM, QMO
     Route: 058
     Dates: start: 201808

REACTIONS (6)
  - Inappropriate schedule of product administration [Unknown]
  - Cerebral infarction [Recovered/Resolved]
  - Therapeutic response shortened [Unknown]
  - Congestive cardiomyopathy [Unknown]
  - Cerebellar infarction [Unknown]
  - Embolic stroke [Unknown]

NARRATIVE: CASE EVENT DATE: 2018
